FAERS Safety Report 6555607-2 (Version None)
Quarter: 2010Q1

REPORT INFORMATION
  Report Type: 
  Country: None (occurrence: None)
  Receive Date: 20100128
  Receipt Date: 20100119
  Transmission Date: 20100710
  Serious: Yes (Hospitalization)
  Sender: FDA-Public Use
  Company Number: US-EISAI INC.-E7272-00045-SPO-US

PATIENT
  Sex: Male

DRUGS (6)
  1. ONTAK [Suspect]
     Route: 041
     Dates: start: 20090223, end: 20100106
  2. ONTAK [Suspect]
     Route: 041
     Dates: start: 20070305, end: 20070627
  3. ONTAK [Suspect]
     Route: 041
     Dates: start: 20060918, end: 20070304
  4. ONTAK [Suspect]
     Route: 041
     Dates: start: 20060821, end: 20060917
  5. ONTAK [Suspect]
     Route: 016
     Dates: start: 20060725, end: 20060820
  6. TARGRETIN [Suspect]
     Dosage: UNKNOWN
     Route: 065
     Dates: start: 20090201

REACTIONS (3)
  - OXYGEN SATURATION DECREASED [None]
  - PNEUMONITIS CHEMICAL [None]
  - PRURITUS [None]
